FAERS Safety Report 18814591 (Version 1)
Quarter: 2021Q1

REPORT INFORMATION
  Report Type: Spontaneous
  Country: US (occurrence: US)
  Receive Date: 20210201
  Receipt Date: 20210201
  Transmission Date: 20210419
  Serious: No
  Sender: FDA-Public Use
  Company Number: US-SA-2021SA028631

PATIENT
  Sex: Male

DRUGS (1)
  1. SELSUN BLUE [Suspect]
     Active Substance: SELENIUM SULFIDE
     Indication: PRURITUS
     Dosage: UNK, QOD (EVERY OTHER NIGHT )

REACTIONS (1)
  - Drug ineffective [Unknown]
